FAERS Safety Report 4785902-9 (Version None)
Quarter: 2005Q3

REPORT INFORMATION
  Report Type: 
  Country: None (occurrence: None)
  Receive Date: 20050930
  Receipt Date: 20050921
  Transmission Date: 20060218
  Serious: Yes (Hospitalization)
  Sender: FDA-Public Use
  Company Number: 2005US001313

PATIENT
  Age: 44 Year
  Sex: Male
  Weight: 87 kg

DRUGS (7)
  1. PROGRAF [Suspect]
     Indication: PROPHYLAXIS AGAINST TRANSPLANT REJECTION
     Dosage: 10.00 MG, UID/QD, ORAL
     Route: 048
     Dates: start: 20050125
  2. PROGRAF [Suspect]
     Indication: PROPHYLAXIS AGAINST TRANSPLANT REJECTION
     Dosage: 10.00 MG, UID/QD, ORAL
     Route: 048
     Dates: start: 20050330
  3. PREDNISONE [Suspect]
     Indication: PROPHYLAXIS AGAINST TRANSPLANT REJECTION
     Dosage: 10.00 MG, UID/QD, ORAL
     Route: 048
     Dates: start: 20050202
  4. PREDNISONE [Suspect]
     Indication: PROPHYLAXIS AGAINST TRANSPLANT REJECTION
     Dosage: 10.00 MG, UID/QD, ORAL
     Route: 048
     Dates: start: 20050312
  5. SIROLIMUS(SIROLIMUS) SOLUTION [Suspect]
     Indication: PROPHYLAXIS AGAINST TRANSPLANT REJECTION
     Dosage: 2.00 MG, UID,QD, ORAL
     Route: 048
     Dates: start: 20050118
  6. BACTRIM [Concomitant]
  7. RANITIDINE [Concomitant]

REACTIONS (2)
  - LEUKOCYTURIA [None]
  - PYELONEPHRITIS ACUTE [None]
